FAERS Safety Report 18558523 (Version 1)
Quarter: 2020Q4

REPORT INFORMATION
  Report Type: Spontaneous
  Country: US (occurrence: US)
  Receive Date: 20201130
  Receipt Date: 20201130
  Transmission Date: 20210114
  Serious: Yes (Death, Other)
  Sender: FDA-Public Use
  Company Number: US-SA-2020SA343039

PATIENT

DRUGS (3)
  1. OXALIPLATIN. [Suspect]
     Active Substance: OXALIPLATIN
     Indication: COLORECTAL CANCER STAGE III
  2. LEUCOVORIN [FOLINIC ACID] [Concomitant]
     Active Substance: LEUCOVORIN
     Indication: COLORECTAL CANCER STAGE III
  3. FLUOROURACIL. [Concomitant]
     Active Substance: FLUOROURACIL
     Indication: COLORECTAL CANCER STAGE III

REACTIONS (7)
  - Biliary dilatation [Fatal]
  - Hepatic necrosis [Fatal]
  - Acute hepatic failure [Fatal]
  - Cholestasis [Fatal]
  - Venoocclusive liver disease [Fatal]
  - Drug-induced liver injury [Fatal]
  - Hepatic atrophy [Fatal]
